FAERS Safety Report 13251098 (Version 3)
Quarter: 2017Q2

REPORT INFORMATION
  Report Type: Spontaneous
  Country: US (occurrence: US)
  Receive Date: 20170220
  Receipt Date: 20170601
  Transmission Date: 20170830
  Serious: No
  Sender: FDA-Public Use
  Company Number: US-TEVA-733129USA

PATIENT
  Sex: Male
  Weight: 136.2 kg

DRUGS (5)
  1. ACTIQ [Suspect]
     Active Substance: FENTANYL CITRATE
     Indication: PRODUCT USED FOR UNKNOWN INDICATION
     Route: 065
  2. HYDROMORPHONE [Concomitant]
     Active Substance: HYDROMORPHONE
     Indication: PAIN
  3. LYRICA [Concomitant]
     Active Substance: PREGABALIN
     Indication: NEUROPATHY PERIPHERAL
  4. FENTORA [Suspect]
     Active Substance: FENTANYL CITRATE
     Indication: ARACHNOIDITIS
     Route: 065
     Dates: start: 2010
  5. OPANA [Concomitant]
     Active Substance: OXYMORPHONE HYDROCHLORIDE
     Indication: PAIN

REACTIONS (8)
  - Product solubility abnormal [Unknown]
  - Incorrect route of drug administration [Unknown]
  - Renal function test abnormal [Unknown]
  - Product use in unapproved indication [Unknown]
  - Product blister packaging issue [Unknown]
  - Wrong technique in product usage process [Unknown]
  - Product use issue [Unknown]
  - Product physical issue [Unknown]
